FAERS Safety Report 6433070-X (Version None)
Quarter: 2009Q4

REPORT INFORMATION
  Report Type: 
  Country: None (occurrence: None)
  Receive Date: 20091105
  Receipt Date: 20091023
  Transmission Date: 20100525
  Serious: Yes (Hospitalization)
  Sender: FDA-Public Use
  Company Number: ENTC2009-0376

PATIENT
  Age: 76 Year
  Sex: Male

DRUGS (7)
  1. STALEVO 100 [Suspect]
     Indication: PARKINSON'S DISEASE
     Dates: start: 20090201, end: 20090501
  2. CARDENSIEL [Concomitant]
  3. KARDEGIC [Concomitant]
  4. SERETIDE [Concomitant]
  5. INIPOMP [Concomitant]
  6. FINASTERIDE [Concomitant]
  7. PARACETAMOL [Concomitant]

REACTIONS (5)
  - CONFUSIONAL STATE [None]
  - DISORIENTATION [None]
  - FEELING DRUNK [None]
  - HALLUCINATION [None]
  - NERVOUS SYSTEM DISORDER [None]
